FAERS Safety Report 19793675 (Version 1)
Quarter: 2021Q3

REPORT INFORMATION
  Report Type: Spontaneous
  Country: PT (occurrence: PT)
  Receive Date: 20210907
  Receipt Date: 20210907
  Transmission Date: 20211014
  Serious: Yes (Life-Threatening, Hospitalization, Other)
  Sender: FDA-Public Use
  Company Number: PT-CELLTRION INC.-2021PT012015

PATIENT

DRUGS (3)
  1. LEFLUNOMIDE. [Suspect]
     Active Substance: LEFLUNOMIDE
     Indication: SYSTEMIC LUPUS ERYTHEMATOSUS
     Dosage: DAILY IN COMBINATION WITH HYDROXYCHLOROQUINE AND RITUXIMAB
  2. HYDROXYCHLOROQUINE [Suspect]
     Active Substance: HYDROXYCHLOROQUINE
     Indication: SYSTEMIC LUPUS ERYTHEMATOSUS
     Dosage: IN COMBINATION WITH LEFLUNOMIDE DAILY AND RITUXIMAB EVERY 6 MONTHS
  3. RITUXIMAB. [Suspect]
     Active Substance: RITUXIMAB
     Indication: SYSTEMIC LUPUS ERYTHEMATOSUS
     Dosage: EVERY 6 MONTHS; IN COMBINATION WITH HYDROXYCHLOROQUINE AND LEFLUNOMIDE

REACTIONS (10)
  - COVID-19 pneumonia [Recovered/Resolved]
  - Herpes simplex [Recovered/Resolved]
  - Mechanical ventilation [Recovered/Resolved]
  - Oxygen therapy [Recovered/Resolved]
  - Bronchoalveolar lavage abnormal [Recovered/Resolved]
  - Pseudomonas infection [Recovered/Resolved]
  - Acute respiratory failure [Recovered/Resolved]
  - Bacterial test positive [Recovered/Resolved]
  - Off label use [Unknown]
  - Organising pneumonia [Recovered/Resolved]
